FAERS Safety Report 17672294 (Version 1)
Quarter: 2020Q2

REPORT INFORMATION
  Report Type: Spontaneous
  Country: US (occurrence: US)
  Receive Date: 20200415
  Receipt Date: 20200415
  Transmission Date: 20200713
  Serious: No
  Sender: FDA-Public Use
  Company Number: US-PFIZER INC-2018456623

PATIENT
  Age: 55 Year
  Sex: Female
  Weight: 87 kg

DRUGS (3)
  1. LYRICA [Suspect]
     Active Substance: PREGABALIN
     Indication: PAIN
     Dosage: 300 MG, THREE TIMES A DAY (TAKE 3 CAPSULES (300 MG TOTAL) BY MOUTH 3 (THREE) TIMES A DAY)
     Route: 048
     Dates: start: 20190116
  2. LYRICA [Suspect]
     Active Substance: PREGABALIN
     Indication: NECK PAIN
     Dosage: 100 MG, 3X/DAY [THREE TIMES A DAY]
  3. LYRICA [Suspect]
     Active Substance: PREGABALIN
     Dosage: 300 MG, 3X/DAY
     Route: 048
     Dates: start: 20200318

REACTIONS (2)
  - Prescribed overdose [Unknown]
  - Toothache [Unknown]

NARRATIVE: CASE EVENT DATE: 20190116
